FAERS Safety Report 10237021 (Version 1)
Quarter: 2014Q2

REPORT INFORMATION
  Report Type: Spontaneous
  Country: GB (occurrence: GB)
  Receive Date: 20140613
  Receipt Date: 20140613
  Transmission Date: 20141212
  Serious: Yes (Other)
  Sender: FDA-Public Use
  Company Number: GB-BAXTER-2014BAX029061

PATIENT
  Sex: 0

DRUGS (1)
  1. FLUCONAZOLE REDIBAG 2 MG/ML SOLUTION FOR INFUSION [Suspect]
     Indication: PRODUCT USED FOR UNKNOWN INDICATION
     Route: 065

REACTIONS (1)
  - Tumour marker increased [Unknown]
